FAERS Safety Report 8042732 (Version 4)
Quarter: 2012Q4

REPORT INFORMATION
  Report Type: 
  Country: US (occurrence: US)
  Receive Date: 20110718
  Receipt Date: 20121107
  Transmission Date: 20130627
  Serious: Yes (Hospitalization, Other)
  Sender: FDA-Public Use
  Company Number: US-ASTRAZENECA-2010SE19676

PATIENT
  Age: 27 Year
  Sex: Female

DRUGS (49)
  1. SYMBICORT [Suspect]
     Dosage: 80 MCG/4.5 MCG, TWICE A DAY
     Route: 055
     Dates: start: 20090312
  2. NEXIUM [Suspect]
     Route: 048
     Dates: start: 20090312
  3. PRILOSEC [Suspect]
     Route: 048
  4. SEROQUEL [Suspect]
     Route: 048
     Dates: start: 20090312
  5. METFORMIN [Suspect]
     Indication: DIABETES MELLITUS
     Route: 048
     Dates: start: 20090312
  6. ACIPHEX [Concomitant]
     Route: 048
  7. ACTONEL [Concomitant]
     Route: 048
  8. ALBUTEROL [Concomitant]
     Indication: WHEEZING
     Dosage: 90MCG/ INH, 4 TIMES A DAY AS NEEDED
     Route: 055
  9. AMBIEN [Concomitant]
     Route: 048
     Dates: start: 20090312
  10. CYANOCOBALAMIN [Concomitant]
     Route: 048
  11. DILTIAZEM [Concomitant]
     Route: 048
     Dates: start: 20090312
  12. EFFEXOR XR [Concomitant]
     Route: 048
     Dates: start: 20090312
  13. ELMIRON [Concomitant]
     Route: 048
     Dates: start: 20090312
  14. FOLIC ACID [Concomitant]
     Route: 048
     Dates: start: 20090312
  15. GEMFIBROZIL [Concomitant]
     Route: 048
  16. HYDROCHLOROTHIAZIDE [Concomitant]
     Route: 048
     Dates: start: 20090312
  17. IMURAN [Concomitant]
  18. IMURAN [Concomitant]
  19. IPRATROPIUM [Concomitant]
     Indication: WHEEZING
     Dosage: 18 MCG/ INH AS NEEDED
     Route: 055
  20. KCL 20 [Concomitant]
  21. PREVACID [Concomitant]
     Route: 048
  22. LANTUS [Concomitant]
     Indication: DIABETES MELLITUS
     Dosage: 15 UNITS EVERY MORNING
     Route: 058
  23. LIDODERM [Concomitant]
     Indication: ARTHRALGIA
     Dosage: 1 PATCH DAILY AS NEEDED
     Route: 061
  24. MELATONIN [Concomitant]
     Route: 048
  25. MESTINON [Concomitant]
     Route: 048
  26. MESTINON [Concomitant]
     Route: 048
  27. METHYLPHENIDATE [Concomitant]
     Route: 048
  28. NOVOLOG [Concomitant]
     Indication: DIABETES MELLITUS
     Dosage: ACCORDING TO BLOOD SUGAR
     Route: 058
  29. OCELLA [Concomitant]
     Route: 048
  30. PREDNISONE [Concomitant]
     Route: 048
     Dates: start: 20090312
  31. PREDNISONE [Concomitant]
     Route: 048
  32. PYRIDIUM [Concomitant]
     Indication: URINARY TRACT DISORDER
     Route: 048
  33. PYRIDIUM [Concomitant]
     Indication: URINARY TRACT DISORDER
     Route: 048
  34. SUBOXONE [Concomitant]
     Dosage: 8MG-2MG DISINTEGRATING THREE TIMES A DAY
     Route: 060
     Dates: start: 20090312
  35. SYNTHROID [Concomitant]
     Route: 048
  36. TAGAMET [Concomitant]
     Indication: GASTROOESOPHAGEAL REFLUX DISEASE
     Route: 048
  37. TAGAMET [Concomitant]
     Indication: GASTROOESOPHAGEAL REFLUX DISEASE
     Route: 048
  38. TOPAMAX [Concomitant]
     Route: 048
  39. ZOFRAN [Concomitant]
     Indication: NAUSEA
     Route: 048
     Dates: start: 20090312
  40. ZOFRAN [Concomitant]
     Indication: VOMITING
     Route: 048
     Dates: start: 20090312
  41. ZOFRAN [Concomitant]
     Indication: NAUSEA
     Route: 048
  42. ZOFRAN [Concomitant]
     Indication: VOMITING
     Route: 048
  43. YASMIN [Concomitant]
     Route: 048
  44. YASMIN [Concomitant]
     Route: 048
  45. LORATADINE [Concomitant]
     Route: 048
  46. XOPENEX HFA [Concomitant]
     Dates: start: 20090312
  47. BENADRYL [Concomitant]
     Route: 048
     Dates: start: 20090312
  48. VITAMIN D [Concomitant]
     Route: 048
     Dates: start: 20090313
  49. VANCOMYCIN [Concomitant]
     Route: 048
     Dates: start: 20090313

REACTIONS (9)
  - Lactic acidosis [Recovered/Resolved]
  - Gastrooesophageal reflux disease [Unknown]
  - Diabetes mellitus [Unknown]
  - Myasthenia gravis [Unknown]
  - Malaise [Unknown]
  - Mouth ulceration [Unknown]
  - Speech disorder [Unknown]
  - Drug ineffective [Unknown]
  - Intentional drug misuse [Unknown]
